FAERS Safety Report 6739861-X (Version None)
Quarter: 2010Q2

REPORT INFORMATION
  Report Type: 
  Country: None (occurrence: None)
  Receive Date: 20100525
  Receipt Date: 20100518
  Transmission Date: 20101027
  Serious: Yes (Hospitalization)
  Sender: FDA-Public Use
  Company Number: PHHO2010GB07031

PATIENT
  Sex: Male

DRUGS (8)
  1. ZOLEDRONATE T29581+SOLINJ+BM [Suspect]
     Indication: METASTASES TO BONE
     Dosage: UNK
     Route: 042
     Dates: start: 20100225
  2. DOCETAXEL [Suspect]
     Dosage: UNK
     Dates: start: 20100225, end: 20100429
  3. DOCETAXEL [Suspect]
     Dosage: NO TREATMENT
     Dates: start: 20100430, end: 20100506
  4. DOCETAXEL [Suspect]
     Dosage: UNK
     Dates: start: 20100507
  5. PREDNISOLONE [Concomitant]
     Dosage: UNK
     Dates: start: 20100225
  6. CALCIUM [Concomitant]
  7. VITAMIN D [Concomitant]
  8. PROPRANOLOL [Concomitant]

REACTIONS (4)
  - DYSPNOEA EXERTIONAL [None]
  - PULMONARY EMBOLISM [None]
  - SINUS TACHYCARDIA [None]
  - THROMBOSIS [None]
